FAERS Safety Report 8953184 (Version 8)
Quarter: 2013Q3

REPORT INFORMATION
  Report Type: Report from Study
  Country: NO (occurrence: NO)
  Receive Date: 20121206
  Receipt Date: 20130824
  Transmission Date: 20140515
  Serious: Yes (Hospitalization, Other)
  Sender: FDA-Public Use
  Company Number: NO-ACCORD-015460

PATIENT
  Age: 75 Year
  Sex: Male
  Weight: 73 kg

DRUGS (17)
  1. TRIATEC [Concomitant]
     Indication: HYPERTENSION
  2. NYCOPLUS B-TOTAL [Concomitant]
     Indication: PROPHYLAXIS
  3. DEXAMETHASONE [Concomitant]
     Indication: PREMEDICATION
     Dosage: 32 MG IN THE MORNING AND EVENING THE DAY BEFORE, SAME DAY AND THE DAY AFTER CHEMOTHERAPY
     Dates: start: 20121025, end: 20121027
  4. SELO-ZOK [Concomitant]
     Indication: HYPERTENSION
  5. FURIX [Concomitant]
     Indication: POLYURIA
     Dates: start: 20121103, end: 20121109
  6. ALBYL-E [Concomitant]
     Indication: ANTICOAGULANT THERAPY
  7. INVESTIGATIONAL DRUG [Suspect]
     Indication: NON-SMALL CELL LUNG CANCER STAGE IV
     Dosage: BLINDED THERAPY, DAY 1 OF 21 DAY CYCLE
     Route: 042
     Dates: start: 20121026, end: 20121119
  8. LIPITOR [Concomitant]
  9. LEVAXIN [Concomitant]
     Indication: HYPOTHYROIDISM
  10. PARACET [Concomitant]
     Indication: PAIN
  11. KALEORID [Concomitant]
     Indication: PROPHYLAXIS
  12. REMERON [Concomitant]
     Indication: DEPRESSION
  13. FENTANYL [Concomitant]
     Indication: PAIN
  14. SOBRIL [Concomitant]
  15. DOCETAXEL [Suspect]
     Indication: NON-SMALL CELL LUNG CANCER STAGE IV
     Dosage: DAY1 OF 21 DAY CYCLE
     Route: 042
     Dates: start: 20121026, end: 20121119
  16. FRAGMIN [Concomitant]
  17. MONOKET [Concomitant]
     Indication: HYPERTENSION

REACTIONS (6)
  - Urinary tract infection [Recovered/Resolved]
  - Dehydration [Recovered/Resolved]
  - Neutrophil count decreased [Recovered/Resolved]
  - Fall [Unknown]
  - Lower limb fracture [Unknown]
  - Diarrhoea [Recovered/Resolved]
